FAERS Safety Report 9998916 (Version 1)
Quarter: 2014Q1

REPORT INFORMATION
  Report Type: Spontaneous
  Country: US (occurrence: None)
  Receive Date: 20140311
  Receipt Date: 20140311
  Transmission Date: 20141002
  Serious: Yes (Death)
  Sender: FDA-Public Use
  Company Number: None

PATIENT
  Age: 52 Year
  Sex: Female
  Weight: 118 kg

DRUGS (1)
  1. THROMBIN [Suspect]
     Indication: HAEMOSTASIS
     Dosage: 20,000 UNITS  PRN/AS NEEDED TOPICAL
     Route: 061
     Dates: start: 20130101, end: 20140131

REACTIONS (5)
  - Wrong drug administered [None]
  - Accidental exposure to product [None]
  - Mental status changes [None]
  - Cyanosis [None]
  - Cardiac arrest [None]
